FAERS Safety Report 19062761 (Version 1)
Quarter: 2021Q1

REPORT INFORMATION
  Report Type: Report from Study
  Country: CA (occurrence: CA)
  Receive Date: 20210326
  Receipt Date: 20210326
  Transmission Date: 20210420
  Serious: Yes (Other)
  Sender: FDA-Public Use
  Company Number: CA-TAKEDA-2021TUS018468

PATIENT
  Age: 72 Year
  Sex: Male

DRUGS (7)
  1. IRON [Concomitant]
     Active Substance: IRON
     Indication: SUPPLEMENTATION THERAPY
     Dosage: UNK
  2. ASACOL [Concomitant]
     Active Substance: MESALAMINE
     Dosage: UNK
     Dates: start: 20140101
  3. ACETAMINOPHEN. [Concomitant]
     Active Substance: ACETAMINOPHEN
     Indication: PREMEDICATION
     Dosage: 650 MILLIGRAM
     Route: 048
  4. MESALAMINE. [Concomitant]
     Active Substance: MESALAMINE
     Dosage: UNK
     Dates: start: 20140101
  5. VEDOLIZUMAB [Suspect]
     Active Substance: VEDOLIZUMAB
     Indication: COLITIS ULCERATIVE
     Dosage: 300 MILLIGRAM
     Route: 042
     Dates: start: 20161201
  6. VITAMIN B3 [Concomitant]
     Active Substance: NIACIN
     Indication: SUPPLEMENTATION THERAPY
     Dosage: UNK
  7. TYLENOL WITH CODEINE [Concomitant]
     Active Substance: ACETAMINOPHEN\CODEINE PHOSPHATE
     Indication: LIMB INJURY
     Dosage: UNK, QD

REACTIONS (1)
  - Nephrolithiasis [Not Recovered/Not Resolved]
